FAERS Safety Report 5347630-0 (Version None)
Quarter: 2007Q2

REPORT INFORMATION
  Report Type: 
  Country: None (occurrence: None)
  Receive Date: 20070606
  Receipt Date: 20070605
  Transmission Date: 20071010
  Serious: Yes (Life-Threatening)
  Sender: FDA-Public Use
  Company Number: IT-BRISTOL-MYERS SQUIBB COMPANY-13802830

PATIENT
  Age: 37 Year
  Sex: Female

DRUGS (2)
  1. ZERIT [Suspect]
     Route: 048
     Dates: start: 20060704, end: 20070505
  2. EPIVIR [Suspect]
     Route: 048
     Dates: start: 20060704, end: 20070505

REACTIONS (4)
  - ABDOMINAL PAIN [None]
  - ACIDOSIS [None]
  - NAUSEA [None]
  - VOMITING [None]
